FAERS Safety Report 9168403 (Version 1)
Quarter: 2013Q1

REPORT INFORMATION
  Report Type: Spontaneous
  Country: US (occurrence: None)
  Receive Date: 20130313
  Receipt Date: 20130313
  Transmission Date: 20140127
  Serious: Yes (Other)
  Sender: FDA-Public Use
  Company Number: None

PATIENT
  Age: 33 Year
  Sex: Female

DRUGS (2)
  1. EXJADE 500MG NOVARTIS [Suspect]
     Indication: SICKLE CELL ANAEMIA
     Route: 048
     Dates: start: 20130205, end: 20130305
  2. EXJADE 500MG NOVARTIS [Suspect]
     Indication: IRON OVERLOAD
     Route: 048
     Dates: start: 20130205, end: 20130305

REACTIONS (4)
  - Nausea [None]
  - Vomiting [None]
  - Diarrhoea [None]
  - Sickle cell anaemia with crisis [None]
